FAERS Safety Report 11228572 (Version 2)
Quarter: 2015Q3

REPORT INFORMATION
  Report Type: Spontaneous
  Country: HU (occurrence: HU)
  Receive Date: 20150630
  Receipt Date: 20150729
  Transmission Date: 20151125
  Serious: No
  Sender: FDA-Public Use
  Company Number: HU-PFIZER INC-2015213647

PATIENT
  Age: 82 Year
  Sex: Female

DRUGS (6)
  1. HYGROTON [Concomitant]
     Active Substance: CHLORTHALIDONE
     Dosage: FOR A LONG TIME
  2. MEDROL [Suspect]
     Active Substance: METHYLPREDNISOLONE
     Dosage: 4 MG, 2X/DAY (SECOND 7 DAYS)
     Dates: start: 20150627, end: 20150703
  3. MEDROL [Suspect]
     Active Substance: METHYLPREDNISOLONE
     Dosage: 4 MG, 1X/DAY
     Dates: start: 20150704, end: 20150710
  4. KALDYUM [Concomitant]
     Active Substance: POTASSIUM CHLORIDE
     Dosage: FOR A LONG TIME
  5. MEDROL [Suspect]
     Active Substance: METHYLPREDNISOLONE
     Indication: ARTHRALGIA
     Dosage: 4 MG, 3X/DAY (FIRST 7 DAYS)
     Dates: start: 20150620, end: 20150626
  6. BETALOC [Concomitant]
     Active Substance: METOPROLOL TARTRATE
     Dosage: FOR A LONG TIME

REACTIONS (3)
  - Dysgeusia [Unknown]
  - Lentigo [Not Recovered/Not Resolved]
  - Condition aggravated [Not Recovered/Not Resolved]
